FAERS Safety Report 14401123 (Version 1)
Quarter: 2018Q1

REPORT INFORMATION
  Report Type: Spontaneous
  Country: US (occurrence: US)
  Receive Date: 20180117
  Receipt Date: 20180117
  Transmission Date: 20180509
  Serious: No
  Sender: FDA-Public Use
  Company Number: US-PFIZER INC-2018016248

PATIENT
  Age: 14 Year
  Sex: Male

DRUGS (3)
  1. QUILLIVANT XR [Suspect]
     Active Substance: METHYLPHENIDATE HYDROCHLORIDE
     Indication: ATTENTION DEFICIT/HYPERACTIVITY DISORDER
     Dosage: ABOUT 9ML EVERY MORNING
     Route: 048
  2. OXCARBAZEPINE. [Concomitant]
     Active Substance: OXCARBAZEPINE
     Indication: SEIZURE
     Dosage: 1 TEASPOON IN THE AM AND PM
     Route: 048
  3. KEPPRA [Concomitant]
     Active Substance: LEVETIRACETAM
     Indication: SEIZURE
     Dosage: 1 TEASPOON EVERY AM AND PM
     Route: 048

REACTIONS (5)
  - Affective disorder [Unknown]
  - Weight increased [Unknown]
  - Somnolence [Unknown]
  - Malaise [Unknown]
  - Crying [Unknown]

NARRATIVE: CASE EVENT DATE: 2016
